FAERS Safety Report 25524570 (Version 1)
Quarter: 2025Q3

REPORT INFORMATION
  Report Type: Spontaneous
  Country: US (occurrence: None)
  Receive Date: 20250706
  Receipt Date: 20250706
  Transmission Date: 20251021
  Serious: Yes (Life-Threatening, Hospitalization)
  Sender: FDA-CTU
  Company Number: None

PATIENT
  Age: 18 Year
  Sex: Female
  Weight: 49 kg

DRUGS (2)
  1. MIFEPRISTONE [Suspect]
     Active Substance: MIFEPRISTONE
     Indication: Abortion induced
     Route: 048
     Dates: start: 20250606, end: 20250607
  2. MISOPROSTOL [Concomitant]
     Active Substance: MISOPROSTOL
     Dates: start: 20250607, end: 20250608

REACTIONS (8)
  - Abortion incomplete [None]
  - Leukocytosis [None]
  - Retained products of conception [None]
  - Sepsis [None]
  - Nausea [None]
  - Vomiting [None]
  - Clostridial sepsis [None]
  - Anaemia [None]

NARRATIVE: CASE EVENT DATE: 20250704
